FAERS Safety Report 5626981-6 (Version None)
Quarter: 2008Q1

REPORT INFORMATION
  Report Type: 
  Country: None (occurrence: None)
  Receive Date: 20080212
  Receipt Date: 20080128
  Transmission Date: 20080703
  Serious: Yes (Congenital Anomaly)
  Sender: FDA-Public Use
  Company Number: B0506796A

PATIENT
  Sex: Male

DRUGS (6)
  1. FLUTICASONE PROPIONATE [Suspect]
     Indication: RHINITIS ALLERGIC
     Dosage: TRANSPLACENTARY
     Route: 064
  2. ALBENZA [Suspect]
     Dosage: TRANSPLACENTARY
     Route: 064
  3. CHLORPHENIRAMINE TAB [Suspect]
     Dosage: TRANSPLACENTARY
     Route: 064
  4. FENOTEROL (FORMULATION UNKNOWN) (FENOTEROL) [Suspect]
     Dosage: TRANSPLACENTARY
     Route: 064
  5. ROXITHROMYCIN (FORMULATION UNKNOWN) (ROXITHROMYCIN) [Suspect]
     Dosage: TRANSPLACENTARY
     Route: 064
  6. METHYLEPHEDRINE HCL (FORMULATION UNKNOWN) (METHYLEPHEDRINE) [Suspect]
     Dosage: TRANSPLACENTARY
     Route: 064

REACTIONS (4)
  - CONGENITAL ANOMALY [None]
  - DRUG EXPOSURE DURING PREGNANCY [None]
  - RENAL HYPOPLASIA [None]
  - URETERIC DILATATION [None]
